FAERS Safety Report 9423030 (Version 2)
Quarter: 2013Q4

REPORT INFORMATION
  Report Type: Spontaneous
  Country: US (occurrence: US)
  Receive Date: 20130726
  Receipt Date: 20131118
  Transmission Date: 20140711
  Serious: Yes (Death, Hospitalization)
  Sender: FDA-Public Use
  Company Number: US-GLAXOSMITHKLINE-A1034413A

PATIENT
  Age: 58 Year
  Sex: Female

DRUGS (5)
  1. TYKERB [Suspect]
     Indication: BREAST CANCER
     Dosage: 1250MG TWICE PER DAY
     Route: 048
     Dates: start: 20130626, end: 20130713
  2. XELODA [Concomitant]
  3. ZOLOFT [Concomitant]
  4. ATIVAN [Concomitant]
  5. OXYCODONE [Concomitant]

REACTIONS (4)
  - Breast cancer [Fatal]
  - Metastases to liver [Fatal]
  - Renal failure [Fatal]
  - Hepatic failure [Fatal]
